FAERS Safety Report 7288745-X (Version None)
Quarter: 2011Q1

REPORT INFORMATION
  Report Type: 
  Country: None (occurrence: None)
  Receive Date: 20110211
  Receipt Date: 20110209
  Transmission Date: 20110831
  Serious: Yes (Death, Other)
  Sender: FDA-Public Use
  Company Number: PHHY2011CR10496

PATIENT
  Age: 60 Year
  Sex: Female

DRUGS (1)
  1. GLEEVEC [Suspect]
     Indication: CHRONIC MYELOID LEUKAEMIA
     Dosage: 400 MG/DAY
     Route: 048
     Dates: start: 20100901

REACTIONS (7)
  - BACTERAEMIA [None]
  - EPISTAXIS [None]
  - SYSTEMIC CANDIDA [None]
  - FEBRILE NEUTROPENIA [None]
  - SEPTIC SHOCK [None]
  - BONE MARROW FAILURE [None]
  - PANCYTOPENIA [None]
